FAERS Safety Report 4930241-6 (Version None)
Quarter: 2006Q1

REPORT INFORMATION
  Report Type: 
  Country: None (occurrence: None)
  Receive Date: 20060302
  Receipt Date: 20060223
  Transmission Date: 20060701
  Serious: Yes (Other)
  Sender: FDA-Public Use
  Company Number: US-BRISTOL-MYERS SQUIBB COMPANY-13297668

PATIENT
  Age: 45 Year
  Sex: Male

DRUGS (1)
  1. ERBITUX [Suspect]
     Indication: NEOPLASM MALIGNANT
     Route: 042

REACTIONS (3)
  - BLOOD PRESSURE DECREASED [None]
  - HYPERHIDROSIS [None]
  - OXYGEN SATURATION DECREASED [None]
